FAERS Safety Report 8452004-X (Version None)
Quarter: 2012Q2

REPORT INFORMATION
  Report Type: 
  Country: None (occurrence: None)
  Receive Date: 20120620
  Receipt Date: 20120418
  Transmission Date: 20120825
  Serious: No
  Sender: FDA-Public Use
  Company Number: US-VERTEX PHARMACEUTICALS INC.-AE-2012-004503

PATIENT
  Sex: Male
  Weight: 92.616 kg

DRUGS (3)
  1. PEGASYS [Concomitant]
     Indication: HEPATITIS C
     Route: 058
     Dates: start: 20120304
  2. INCIVEK [Suspect]
     Indication: HEPATITIS C
     Route: 048
     Dates: start: 20120304
  3. RIBAVIRIN [Concomitant]
     Indication: HEPATITIS C
     Dates: start: 20120304

REACTIONS (12)
  - RASH [None]
  - INSOMNIA [None]
  - CONSTIPATION [None]
  - NAUSEA [None]
  - ABDOMINAL DISTENSION [None]
  - ASTHENIA [None]
  - ARTHRALGIA [None]
  - FATIGUE [None]
  - DIZZINESS [None]
  - DRY SKIN [None]
  - POLLAKIURIA [None]
  - VOMITING [None]
